FAERS Safety Report 18564923 (Version 2)
Quarter: 2021Q1

REPORT INFORMATION
  Report Type: Spontaneous
  Country: US (occurrence: US)
  Receive Date: 20201201
  Receipt Date: 20210108
  Transmission Date: 20210419
  Serious: No
  Sender: FDA-Public Use
  Company Number: US-MYLANLABS-2020M1096944

PATIENT
  Age: 55 Year
  Sex: Female
  Weight: 59 kg

DRUGS (11)
  1. AMLODIPINE [Concomitant]
     Active Substance: AMLODIPINE BESYLATE
     Indication: HYPERTENSION
     Dosage: 5 MILLIGRAM, QD
  2. CALCIUM [Concomitant]
     Active Substance: CALCIUM
     Dosage: UNK
  3. LEVOTHYROXINE SODIUM TABLETS, USP [Suspect]
     Active Substance: LEVOTHYROXINE SODIUM
     Dosage: ONE TIME IN AM (ON EMPTY STOMACH FOR 1 HOUR)
     Dates: start: 2009
  4. SUPER B COMPLEX                    /01995301/ [Concomitant]
     Active Substance: CYANOCOBALAMIN\DEXPANTHENOL\NIACINAMIDE\PYRIDOXINE HYDROCHLORIDE\RIBOFLAVIN 5^-PHOSPHATE SODIUM\THIAMINE HYDROCHLORIDE\VITAMIN B COMPLEX
     Dosage: UNK
  5. LEVOTHYROXINE SODIUM TABLETS, USP [Suspect]
     Active Substance: LEVOTHYROXINE SODIUM
     Indication: BASEDOW^S DISEASE
     Dosage: USING 100 MCG MONDAY WEDNESDAY FRIDAY
     Route: 048
  6. CENTRUM SILVER                     /02363801/ [Concomitant]
     Active Substance: MINERALS\VITAMINS
     Dosage: UNK
  7. VITAMIN D3 [Concomitant]
     Active Substance: CHOLECALCIFEROL
     Dosage: UNK
  8. LEVOTHYROXINE SODIUM TABLETS, USP [Suspect]
     Active Substance: LEVOTHYROXINE SODIUM
     Dosage: 1 TIME IN AM (ON EMPTY STOMACH FOR 1 HOUR)
     Dates: start: 2009
  9. LEVOTHYROXINE SODIUM TABLETS, USP [Suspect]
     Active Substance: LEVOTHYROXINE SODIUM
     Indication: BASEDOW^S DISEASE
     Dosage: 88 MCG TUESDAY THURSDAY, SATURDAY AND SUNDAY
     Route: 048
  10. LEVOTHYROXINE SODIUM TABLETS, USP [Suspect]
     Active Substance: LEVOTHYROXINE SODIUM
     Dosage: ONCE DAILY
  11. MAGNESIUM [Concomitant]
     Active Substance: MAGNESIUM
     Dosage: UNK

REACTIONS (3)
  - Blood thyroid stimulating hormone abnormal [Unknown]
  - Therapeutic product effect increased [Not Recovered/Not Resolved]
  - Off label use [Not Recovered/Not Resolved]

NARRATIVE: CASE EVENT DATE: 201808
